FAERS Safety Report 26123848 (Version 1)
Quarter: 2025Q4

REPORT INFORMATION
  Report Type: Spontaneous
  Country: TW (occurrence: TW)
  Receive Date: 20251205
  Receipt Date: 20251205
  Transmission Date: 20260117
  Serious: Yes (Hospitalization)
  Sender: STRIDES
  Company Number: TW-STRIDES ARCOLAB LIMITED-2025SP015065

PATIENT
  Age: 13 Month
  Sex: Male
  Weight: 9 kg

DRUGS (2)
  1. AMLODIPINE [Suspect]
     Active Substance: AMLODIPINE BESYLATE
     Indication: Hypertension
     Dosage: 3.75 MILLIGRAM, TID; TITRATED UP TO 3.75MG THREE TIMES PER DAY
     Route: 065
  2. AMLODIPINE [Suspect]
     Active Substance: AMLODIPINE BESYLATE
     Dosage: THREE TIMES PER DAY
     Route: 065

REACTIONS (1)
  - Ascites [Recovered/Resolved]
